FAERS Safety Report 9857668 (Version 2)
Quarter: 2014Q1

REPORT INFORMATION
  Report Type: Spontaneous
  Country: IT (occurrence: IT)
  Receive Date: 20140131
  Receipt Date: 20140131
  Transmission Date: 20141002
  Serious: Yes (Other)
  Sender: FDA-Public Use
  Company Number: IT-ASTRAZENECA-2013SE80395

PATIENT
  Age: 10 Year
  Sex: Female

DRUGS (2)
  1. VANDETANIB [Suspect]
     Route: 048
     Dates: start: 20131030, end: 20131030
  2. TACHIPIRINA [Suspect]
     Route: 065

REACTIONS (3)
  - Bundle branch block right [Unknown]
  - Electrocardiogram QT prolonged [Recovering/Resolving]
  - Wrong drug administered [Recovered/Resolved]
